FAERS Safety Report 12323644 (Version 1)
Quarter: 2016Q2

REPORT INFORMATION
  Report Type: Spontaneous
  Country: CA (occurrence: CA)
  Receive Date: 20160502
  Receipt Date: 20160502
  Transmission Date: 20160815
  Serious: Yes (Death, Other)
  Sender: FDA-Public Use
  Company Number: CA-REGENERON PHARMACEUTICALS, INC.-2016-16538

PATIENT

DRUGS (1)
  1. EYLEA [Suspect]
     Active Substance: AFLIBERCEPT
     Indication: MACULAR DEGENERATION
     Dosage: 2 MG, EVERY 8 WEEKS (TOTAL OF 4 DOSES)
     Route: 031
     Dates: start: 20151001, end: 20160322

REACTIONS (1)
  - Death [Fatal]

NARRATIVE: CASE EVENT DATE: 20160423
